FAERS Safety Report 10136058 (Version 1)
Quarter: 2014Q2

REPORT INFORMATION
  Report Type: Spontaneous
  Country: US (occurrence: US)
  Receive Date: 20140429
  Receipt Date: 20140429
  Transmission Date: 20141212
  Serious: No
  Sender: FDA-Public Use
  Company Number: US-BIOGENIDEC-2014BI004893

PATIENT
  Age: 50 Year
  Sex: Female

DRUGS (2)
  1. AVONEX [Suspect]
     Indication: MULTIPLE SCLEROSIS
     Route: 030
     Dates: start: 19971010, end: 20120110
  2. AVONEX [Suspect]
     Indication: MULTIPLE SCLEROSIS
     Route: 030
     Dates: start: 20140126

REACTIONS (6)
  - General symptom [Not Recovered/Not Resolved]
  - Urinary tract infection [Unknown]
  - Irritability [Unknown]
  - Disturbance in attention [Unknown]
  - Rash [Unknown]
  - Headache [Recovered/Resolved]
